FAERS Safety Report 5799144-1 (Version None)
Quarter: 2008Q3

REPORT INFORMATION
  Report Type: 
  Country: None (occurrence: None)
  Receive Date: 20080701
  Receipt Date: 20080619
  Transmission Date: 20090109
  Serious: Yes (Hospitalization)
  Sender: FDA-Public Use
  Company Number: 235880J08USA

PATIENT
  Age: 29 Year
  Sex: Female

DRUGS (6)
  1. REBIF [Suspect]
     Indication: MULTIPLE SCLEROSIS
     Dosage: 44 MCG, 3 IN 1 WEEKS, SUBCUTANEOUS
     Route: 058
     Dates: start: 20020918, end: 20080401
  2. DILANTIN [Concomitant]
  3. LAMICTAL [Concomitant]
  4. KEPPRA [Concomitant]
  5. CELEXA [Concomitant]
  6. ARICEPT [Concomitant]

REACTIONS (1)
  - GRAND MAL CONVULSION [None]
